FAERS Safety Report 11116594 (Version 1)
Quarter: 2015Q2

REPORT INFORMATION
  Report Type: Spontaneous
  Country: FR (occurrence: FR)
  Receive Date: 20150515
  Receipt Date: 20150515
  Transmission Date: 20150821
  Serious: Yes (Hospitalization)
  Sender: FDA-Public Use
  Company Number: FR-ELI_LILLY_AND_COMPANY-FR201505000759

PATIENT
  Age: 49 Year
  Sex: Male

DRUGS (6)
  1. TERCIAN                            /00759301/ [Concomitant]
     Active Substance: CYAMEMAZINE
     Dosage: 100 MG, UNKNOWN
     Route: 065
  2. LEXOMIL [Concomitant]
     Active Substance: BROMAZEPAM
     Dosage: UNK, UNKNOWN
     Route: 065
  3. ZOLOFT [Concomitant]
     Active Substance: SERTRALINE HYDROCHLORIDE
     Dosage: 25 MG, UNKNOWN
     Route: 065
  4. NOCTAMIDE [Concomitant]
     Active Substance: LORMETAZEPAM
     Dosage: 2 MG, UNKNOWN
     Route: 065
  5. HEPT A MYL [Concomitant]
     Active Substance: HEPTAMINOL HYDROCHLORIDE
     Dosage: 187.8 MG, UNKNOWN
     Route: 065
  6. ZYPREXA [Suspect]
     Active Substance: OLANZAPINE
     Indication: SCHIZOPHRENIA
     Dosage: 10 MG, BID
     Route: 048

REACTIONS (2)
  - Deep vein thrombosis [Recovered/Resolved]
  - Pulmonary embolism [Recovered/Resolved]

NARRATIVE: CASE EVENT DATE: 20141222
